FAERS Safety Report 7514595-2 (Version None)
Quarter: 2011Q2

REPORT INFORMATION
  Report Type: 
  Country: None (occurrence: None)
  Receive Date: 20110601
  Receipt Date: 20110525
  Transmission Date: 20111010
  Serious: Yes (Hospitalization, Other)
  Sender: FDA-Public Use
  Company Number: IT-ELI_LILLY_AND_COMPANY-IT201104000061

PATIENT
  Sex: Female

DRUGS (6)
  1. ZYPREXA [Concomitant]
     Dosage: 5 MG, UNK
     Route: 048
     Dates: start: 20101201, end: 20110525
  2. SAMYR [Concomitant]
     Dosage: 400 MG, UNK
     Route: 048
     Dates: start: 20040525, end: 20110525
  3. BYETTA [Suspect]
     Indication: TYPE 2 DIABETES MELLITUS
     Dosage: 5 UG, BID
     Route: 058
     Dates: start: 20110301, end: 20110323
  4. METFORMIN HCL [Concomitant]
     Dosage: 2500 MG, QD
  5. TOFRANIL [Concomitant]
     Dosage: 50 MG, UNK
     Route: 048
     Dates: start: 20080525, end: 20110525
  6. LITHIUM CARBONATE [Concomitant]
     Dosage: 900 MG, UNK
     Route: 048
     Dates: start: 20101201, end: 20110525

REACTIONS (1)
  - PANCREATITIS [None]
